FAERS Safety Report 9421477 (Version 1)
Quarter: 2013Q3

REPORT INFORMATION
  Report Type: Spontaneous
  Country: US (occurrence: US)
  Receive Date: 20130726
  Receipt Date: 20130726
  Transmission Date: 20140515
  Serious: Yes (Hospitalization, Other)
  Sender: FDA-Public Use
  Company Number: US-AMGEN-USASP2013051684

PATIENT
  Age: 50 Year
  Sex: Female

DRUGS (12)
  1. ENBREL [Suspect]
     Indication: PRODUCT USED FOR UNKNOWN INDICATION
     Dosage: UNK
     Route: 065
     Dates: start: 2012
  2. HUMIRA [Suspect]
     Indication: RHEUMATOID ARTHRITIS
     Dosage: 40 MG, Q2WK
     Dates: start: 200801
  3. MOTRIN [Concomitant]
     Indication: PAIN
     Dosage: 2400 MG (800 MG, 3 IN 1 D)
  4. MOTRIN [Concomitant]
     Indication: INFLAMMATION
  5. NEURONTIN [Concomitant]
     Indication: NEURALGIA
     Dosage: 2700 MG, (900 MG, 3 IN 1D)
  6. PLAQUENIL                          /00072602/ [Concomitant]
     Indication: RHEUMATOID ARTHRITIS
     Dosage: 2 IN 1 D
  7. AMLODIPINE [Concomitant]
     Indication: BLOOD PRESSURE
     Dosage: 5 MG, 1 IN 1 D
  8. EVOXAC [Concomitant]
     Indication: SJOGREN^S SYNDROME
     Dosage: 120 MG, (30 MG, 4 IN 1 D)
  9. POTASSIUM [Concomitant]
     Indication: MINERAL SUPPLEMENTATION
     Dosage: 30MILLIEQUIVALENTS (10 MILLIEQUIVALENTS,3 IN 1 D)
  10. NEXIUM                             /01479302/ [Concomitant]
     Indication: ABDOMINAL PAIN UPPER
     Dosage: 40 MG, 1-2 DAY
  11. CYMBALTA [Concomitant]
     Indication: PAIN
     Dosage: 60 MG, (30 MG,2 IN 1 D)
  12. OXYCODONE [Concomitant]
     Indication: PAIN
     Dosage: AS NEEDED (6 IN 1 D)

REACTIONS (5)
  - Cholecystectomy [Unknown]
  - Heart rate increased [Unknown]
  - Crohn^s disease [Unknown]
  - Drug effect decreased [Unknown]
  - No therapeutic response [Unknown]
